FAERS Safety Report 21682142 (Version 1)
Quarter: 2022Q4

REPORT INFORMATION
  Report Type: Spontaneous
  Country: US (occurrence: None)
  Receive Date: 20221205
  Receipt Date: 20221205
  Transmission Date: 20230113
  Serious: No
  Sender: FDA-Public Use
  Company Number: 2022A342584

PATIENT
  Age: 83 Year
  Sex: Female
  Weight: 54.4 kg

DRUGS (1)
  1. FASENRA [Suspect]
     Active Substance: BENRALIZUMAB
     Indication: Chronic obstructive pulmonary disease
     Dosage: 30MG/ML EVERY EIGHT WEEKS
     Route: 058
     Dates: start: 202201

REACTIONS (9)
  - Injection site discharge [Unknown]
  - Product use in unapproved indication [Not Recovered/Not Resolved]
  - Product dose omission issue [Not Recovered/Not Resolved]
  - Insurance issue [Unknown]
  - Product distribution issue [Unknown]
  - Device leakage [Unknown]
  - Needle issue [Unknown]
  - Device delivery system issue [Unknown]
  - Product administration error [Unknown]

NARRATIVE: CASE EVENT DATE: 20220101
